FAERS Safety Report 5915024-2 (Version None)
Quarter: 2008Q4

REPORT INFORMATION
  Report Type: 
  Country: None (occurrence: None)
  Receive Date: 20081010
  Receipt Date: 20081007
  Transmission Date: 20090506
  Serious: Yes (Death, Hospitalization)
  Sender: FDA-Public Use
  Company Number: FR-AVENTIS-200813545FR

PATIENT
  Age: 48 Year
  Sex: Female

DRUGS (6)
  1. FLAGYL [Suspect]
     Route: 048
     Dates: start: 20080811, end: 20080820
  2. FORTUM                             /00559702/ [Suspect]
     Route: 042
     Dates: start: 20080807, end: 20080816
  3. SOLU-MEDROL [Concomitant]
     Indication: MULTIPLE SCLEROSIS
     Route: 042
     Dates: start: 20080729, end: 20080802
  4. TAZOCILLINE [Concomitant]
     Route: 042
     Dates: start: 20080816, end: 20080819
  5. CIFLOX                             /00697201/ [Concomitant]
     Route: 042
     Dates: start: 20080816, end: 20080819
  6. VANCOMYCIN HCL [Concomitant]
     Route: 042
     Dates: start: 20080816, end: 20080819

REACTIONS (4)
  - HAEMOGLOBIN DECREASED [None]
  - LEUKOPENIA [None]
  - PANCYTOPENIA [None]
  - THROMBOCYTOPENIA [None]
